FAERS Safety Report 25915371 (Version 1)
Quarter: 2025Q4

REPORT INFORMATION
  Report Type: Spontaneous
  Country: US (occurrence: US)
  Receive Date: 20251013
  Receipt Date: 20251013
  Transmission Date: 20260118
  Serious: No
  Sender: ANI
  Company Number: US-ANIPHARMA-2025-US-034899

PATIENT
  Age: 84 Year
  Sex: Female
  Weight: 65.77 kg

DRUGS (8)
  1. CORTICOTROPIN [Suspect]
     Active Substance: CORTICOTROPIN
     Indication: Nephritic syndrome
     Dosage: INJECT 1 ML IN ABDOMEN TWICE PER WEEK
     Route: 058
     Dates: start: 202504
  2. AMLODIPINE [Concomitant]
     Active Substance: AMLODIPINE BESYLATE
  3. CARVEDILOL [Concomitant]
     Active Substance: CARVEDILOL
  4. ROSUVASTATIN [Concomitant]
     Active Substance: ROSUVASTATIN
  5. MAGNESIUM [Concomitant]
     Active Substance: MAGNESIUM
  6. VITAMIN D [Concomitant]
     Active Substance: VITAMIN D NOS
  7. FISH OIL [Concomitant]
     Active Substance: FISH OIL
  8. VITAMINS [Concomitant]
     Active Substance: VITAMINS

REACTIONS (4)
  - Joint swelling [Not Recovered/Not Resolved]
  - Burning sensation [Not Recovered/Not Resolved]
  - Peripheral swelling [Not Recovered/Not Resolved]
  - Contraindicated product administered [Not Recovered/Not Resolved]

NARRATIVE: CASE EVENT DATE: 20250401
